FAERS Safety Report 5366261-X (Version None)
Quarter: 2007Q2

REPORT INFORMATION
  Report Type: 
  Country: None (occurrence: None)
  Receive Date: 20070619
  Receipt Date: 20070619
  Transmission Date: 20071010
  Serious: No
  Sender: FDA-Public Use
  Company Number: None

PATIENT
  Age: 77 Year
  Sex: Male
  Weight: 74.4 kg

DRUGS (2)
  1. FUROSEMIDE [Suspect]
     Indication: FLUID OVERLOAD
     Dosage: 20 MG DAILY PO
     Route: 048
  2. DABEGATRIN [Suspect]
     Indication: ANTICOAGULANT THERAPY
     Dosage: DAILY PO
     Route: 048
     Dates: start: 20061027, end: 20070306

REACTIONS (2)
  - ERYTHEMA [None]
  - RASH ERYTHEMATOUS [None]
